FAERS Safety Report 7636245-7 (Version None)
Quarter: 2011Q3

REPORT INFORMATION
  Report Type: 
  Country: None (occurrence: None)
  Receive Date: 20110726
  Receipt Date: 20110719
  Transmission Date: 20111222
  Serious: Yes (Hospitalization)
  Sender: FDA-Public Use
  Company Number: CA-ABBOTT-11P-028-0838022-00

PATIENT
  Sex: Female
  Weight: 104.42 kg

DRUGS (3)
  1. COMBIVIR [Concomitant]
     Indication: HIV INFECTION
     Route: 048
  2. KALETRA [Suspect]
     Indication: ANTIRETROVIRAL THERAPY
     Dosage: 200MG/50 MG X 2 BID = 800MG/200MG
     Route: 048
  3. PRENATAL VITAMINS [Concomitant]
     Indication: PREGNANCY
     Route: 048

REACTIONS (2)
  - MENTAL DISORDER [None]
  - ADJUSTMENT DISORDER [None]
